FAERS Safety Report 20203184 (Version 1)
Quarter: 2021Q4

REPORT INFORMATION
  Report Type: Report from Study
  Country: HU (occurrence: HU)
  Receive Date: 20211218
  Receipt Date: 20211218
  Transmission Date: 20220303
  Serious: Yes (Death, Hospitalization)
  Sender: FDA-Public Use
  Company Number: HU-NOVARTISPH-NVSC2021HU289124

PATIENT
  Age: 69 Year
  Sex: Female

DRUGS (2)
  1. METFORMIN HYDROCHLORIDE\VILDAGLIPTIN [Suspect]
     Active Substance: METFORMIN HYDROCHLORIDE\VILDAGLIPTIN
     Indication: Product used for unknown indication
     Dosage: 50/1000 MG
     Route: 065
     Dates: start: 20211027, end: 202111
  2. BASAL-H-INSULIN [Concomitant]
     Indication: Product used for unknown indication
     Dosage: UNK
     Route: 065

REACTIONS (3)
  - Death [Fatal]
  - Jaundice [Unknown]
  - Feeding disorder [Unknown]

NARRATIVE: CASE EVENT DATE: 20211210
